FAERS Safety Report 7312387-0 (Version None)
Quarter: 2011Q1

REPORT INFORMATION
  Report Type: 
  Country: None (occurrence: None)
  Receive Date: 20110214
  Receipt Date: 20110204
  Transmission Date: 20110831
  Serious: Yes (Death)
  Sender: FDA-Public Use
  Company Number: TRP_07550_2011

PATIENT
  Age: 59 Year
  Sex: Female

DRUGS (4)
  1. AMPHOTERICIN B [Suspect]
     Indication: ANTIFUNGAL PROPHYLAXIS
     Dosage: (DF, FOR UNKNOWN INTRAVENOUS (NOT OTHERWISE SPECIFIED))
     Route: 042
  2. ANTIBIOTICS [Concomitant]
  3. LEFLUNOMIDE [Concomitant]
  4. PREDNISOLONE [Concomitant]

REACTIONS (2)
  - PNEUMONIA [None]
  - RENAL FAILURE [None]
